FAERS Safety Report 24252393 (Version 1)
Quarter: 2024Q3

REPORT INFORMATION
  Report Type: Spontaneous
  Country: CN (occurrence: CN)
  Receive Date: 20240827
  Receipt Date: 20240827
  Transmission Date: 20241017
  Serious: Yes (Other)
  Sender: CHEPLAPHARM
  Company Number: CN-ROCHE-10000054055

PATIENT
  Age: 37 Year
  Sex: Female

DRUGS (35)
  1. CAPECITABINE [Suspect]
     Active Substance: CAPECITABINE
     Indication: Breast cancer metastatic
  2. PYROTINIB [Suspect]
     Active Substance: PYROTINIB
     Indication: Breast cancer metastatic
  3. TRASTUZUMAB [Suspect]
     Active Substance: TRASTUZUMAB
     Indication: Breast cancer metastatic
  4. TRASTUZUMAB [Suspect]
     Active Substance: TRASTUZUMAB
     Indication: Metastases to central nervous system
  5. TRASTUZUMAB [Suspect]
     Active Substance: TRASTUZUMAB
     Indication: Metastases to lung
  6. TRASTUZUMAB [Suspect]
     Active Substance: TRASTUZUMAB
     Indication: HER2 positive breast cancer
  7. TRASTUZUMAB [Suspect]
     Active Substance: TRASTUZUMAB
     Indication: Breast cancer metastatic
     Dosage: SYSTEMIC THERAPY
  8. TRASTUZUMAB [Suspect]
     Active Substance: TRASTUZUMAB
     Indication: Metastases to central nervous system
     Dosage: SYSTEMIC THERAPY
  9. TRASTUZUMAB [Suspect]
     Active Substance: TRASTUZUMAB
     Indication: Metastases to lung
     Dosage: SYSTEMIC THERAPY
  10. TRASTUZUMAB [Suspect]
     Active Substance: TRASTUZUMAB
     Indication: HER2 positive breast cancer
     Dosage: SYSTEMIC THERAPY
  11. TRASTUZUMAB [Suspect]
     Active Substance: TRASTUZUMAB
     Indication: Breast cancer metastatic
     Dosage: FOUR CYCLES OF THERAPY WITH DOCETAXEL AND TRASTUZUMAB
  12. TRASTUZUMAB [Suspect]
     Active Substance: TRASTUZUMAB
     Indication: Metastases to central nervous system
     Dosage: FOUR CYCLES OF THERAPY WITH DOCETAXEL AND TRASTUZUMAB
  13. TRASTUZUMAB [Suspect]
     Active Substance: TRASTUZUMAB
     Indication: Metastases to lung
     Dosage: FOUR CYCLES OF THERAPY WITH DOCETAXEL AND TRASTUZUMAB
  14. TRASTUZUMAB [Suspect]
     Active Substance: TRASTUZUMAB
     Indication: HER2 positive breast cancer
     Dosage: FOUR CYCLES OF THERAPY WITH DOCETAXEL AND TRASTUZUMAB
  15. TRASTUZUMAB [Suspect]
     Active Substance: TRASTUZUMAB
     Indication: Breast cancer metastatic
     Dosage: TARGETED THERAPY WITH TRASTUZUMAB FOR 1 YEAR
  16. TRASTUZUMAB [Suspect]
     Active Substance: TRASTUZUMAB
     Indication: Metastases to central nervous system
     Dosage: TARGETED THERAPY WITH TRASTUZUMAB FOR 1 YEAR
  17. TRASTUZUMAB [Suspect]
     Active Substance: TRASTUZUMAB
     Indication: Metastases to lung
     Dosage: TARGETED THERAPY WITH TRASTUZUMAB FOR 1 YEAR
  18. TRASTUZUMAB [Suspect]
     Active Substance: TRASTUZUMAB
     Indication: HER2 positive breast cancer
     Dosage: TARGETED THERAPY WITH TRASTUZUMAB FOR 1 YEAR
  19. PERTUZUMAB [Suspect]
     Active Substance: PERTUZUMAB
     Indication: Breast cancer metastatic
  20. ADO-TRASTUZUMAB EMTANSINE [Suspect]
     Active Substance: ADO-TRASTUZUMAB EMTANSINE
     Indication: Breast cancer metastatic
     Dosage: TWO CYCLES
     Dates: start: 2021
  21. PACLITAXEL [Suspect]
     Active Substance: PACLITAXEL
     Indication: Breast cancer metastatic
  22. LAPATINIB [Concomitant]
     Active Substance: LAPATINIB
     Indication: Metastases to lung
     Dosage: SYSTEMIC THERAPY
  23. LAPATINIB [Concomitant]
     Active Substance: LAPATINIB
     Indication: Metastases to central nervous system
     Dosage: SYSTEMIC THERAPY
  24. LAPATINIB [Concomitant]
     Active Substance: LAPATINIB
     Indication: Breast cancer metastatic
     Dosage: SYSTEMIC THERAPY
  25. ERIBULIN [Concomitant]
     Active Substance: ERIBULIN
     Indication: Metastases to lung
     Dosage: SYSTEMIC THERAPY W
  26. ERIBULIN [Concomitant]
     Active Substance: ERIBULIN
     Indication: Breast cancer metastatic
     Dosage: SYSTEMIC THERAPY W
  27. ERIBULIN [Concomitant]
     Active Substance: ERIBULIN
     Indication: Metastases to central nervous system
     Dosage: SYSTEMIC THERAPY W
  28. TUCATINIB [Concomitant]
     Active Substance: TUCATINIB
     Indication: Breast cancer metastatic
     Dates: start: 20220615
  29. DISITAMAB VEDOTIN [Concomitant]
     Active Substance: DISITAMAB VEDOTIN
     Indication: Breast cancer metastatic
     Dosage: DISITAMAB VEDOTIN (RC48)
     Dates: start: 20220615
  30. TRASTUZUMAB DERUXTECAN [Concomitant]
     Active Substance: TRASTUZUMAB DERUXTECAN
     Indication: Breast cancer metastatic
     Dosage: TWO CYCLES
  31. TRASTUZUMAB DERUXTECAN [Concomitant]
     Active Substance: TRASTUZUMAB DERUXTECAN
     Indication: Metastases to central nervous system
     Dosage: TWO CYCLES
  32. CATEQUENTINIB [Concomitant]
     Active Substance: CATEQUENTINIB
     Indication: Metastases to central nervous system
     Dosage: TWO CYCLES
  33. CATEQUENTINIB [Concomitant]
     Active Substance: CATEQUENTINIB
     Indication: Breast cancer metastatic
     Dosage: TWO CYCLES
  34. NAVELBINE [Concomitant]
     Active Substance: VINORELBINE TARTRATE
     Route: 048
  35. BEVACIZUMAB [Concomitant]
     Active Substance: BEVACIZUMAB

REACTIONS (1)
  - Epilepsy [Unknown]

NARRATIVE: CASE EVENT DATE: 20210519
